FAERS Safety Report 9101499 (Version 1)
Quarter: 2013Q1

REPORT INFORMATION
  Report Type: Spontaneous
  Country: BR (occurrence: BR)
  Receive Date: 20130218
  Receipt Date: 20130218
  Transmission Date: 20140127
  Serious: Yes (Hospitalization, Other)
  Sender: FDA-Public Use
  Company Number: BR-ASTRAZENECA-2013SE10026

PATIENT
  Age: 842 Month
  Sex: Female
  Weight: 62 kg

DRUGS (9)
  1. NEXIUM [Suspect]
     Indication: GASTROOESOPHAGEAL REFLUX DISEASE
     Route: 048
     Dates: start: 2010, end: 201301
  2. NEXIUM [Suspect]
     Indication: GASTRITIS
     Route: 048
     Dates: start: 2010, end: 201301
  3. NEXIUM [Suspect]
     Indication: GASTROOESOPHAGEAL REFLUX DISEASE
     Route: 048
     Dates: start: 201301
  4. NEXIUM [Suspect]
     Indication: GASTRITIS
     Route: 048
     Dates: start: 201301
  5. STAVIGILE [Suspect]
     Indication: SOMNOLENCE
     Route: 048
     Dates: start: 201301
  6. PURAN T4 [Concomitant]
     Route: 048
     Dates: start: 2002
  7. BROMAZEPAM [Concomitant]
     Route: 048
     Dates: start: 2009
  8. LABIRIN [Concomitant]
     Indication: LABYRINTHITIS
     Dates: start: 201209
  9. PARKIDOPA [Concomitant]
     Indication: PARKINSON^S DISEASE
     Dates: start: 201212

REACTIONS (9)
  - Pneumonia [Recovered/Resolved]
  - Parkinson^s disease [Recovered/Resolved]
  - Asthenia [Recovered/Resolved]
  - Labyrinthitis [Recovered/Resolved]
  - Influenza [Recovered/Resolved]
  - Gastrooesophageal reflux disease [Recovering/Resolving]
  - Somnolence [Recovering/Resolving]
  - Abdominal pain upper [Recovering/Resolving]
  - Drug ineffective [Unknown]
